FAERS Safety Report 5242781-3 (Version None)
Quarter: 2007Q1

REPORT INFORMATION
  Report Type: 
  Country: None (occurrence: None)
  Receive Date: 20061201
  Receipt Date: 20060829
  Transmission Date: 20070707
  Serious: No
  Sender: FDA-Public Use
  Company Number: 2006PV013100

PATIENT
  Age: 64 Year
  Sex: Male
  Weight: 112.9457 kg

DRUGS (17)
  1. BYETTA [Suspect]
     Indication: DRUG USE FOR UNKNOWN INDICATION
     Dosage: SEE IMAGE
     Route: 058
     Dates: start: 20051228, end: 20060128
  2. BYETTA [Suspect]
     Indication: DRUG USE FOR UNKNOWN INDICATION
     Dosage: SEE IMAGE
     Route: 058
     Dates: start: 20060303, end: 20060404
  3. BYETTA [Suspect]
     Indication: DRUG USE FOR UNKNOWN INDICATION
     Dosage: SEE IMAGE
     Route: 058
     Dates: start: 20060405
  4. AVANDIA [Suspect]
     Indication: DRUG USE FOR UNKNOWN INDICATION
     Dates: start: 20060213, end: 20060302
  5. GLUCOTROL [Concomitant]
  6. METFORMIN [Concomitant]
  7. LANTUS [Concomitant]
  8. DIGOXIN [Concomitant]
  9. MAVIK [Concomitant]
  10. SPIRONOLACTONE [Concomitant]
  11. COREG [Concomitant]
  12. PREVACID [Concomitant]
  13. LEVOXYL [Concomitant]
  14. CYTOMEL [Concomitant]
  15. FUROSEMIDE [Concomitant]
  16. AVANDIA [Concomitant]
  17. BYETTA [Suspect]

REACTIONS (8)
  - BLOOD GLUCOSE INCREASED [None]
  - CARDIAC DISORDER [None]
  - DRUG INEFFECTIVE [None]
  - GLYCOSYLATED HAEMOGLOBIN INCREASED [None]
  - NAUSEA [None]
  - VOMITING [None]
  - WEIGHT DECREASED [None]
  - WEIGHT INCREASED [None]
